FAERS Safety Report 7666782-0 (Version None)
Quarter: 2011Q3

REPORT INFORMATION
  Report Type: 
  Country: None (occurrence: None)
  Receive Date: 20110806
  Receipt Date: 20110610
  Transmission Date: 20111222
  Serious: No
  Sender: FDA-Public Use
  Company Number: US-ABBOTT-11P-163-0730079-00

PATIENT
  Sex: Male
  Weight: 90.8 kg

DRUGS (2)
  1. M.V.I. [Concomitant]
     Indication: PRODUCT USED FOR UNKNOWN INDICATION
  2. NIASPAN [Suspect]
     Indication: BLOOD TRIGLYCERIDES INCREASED
     Dates: start: 20110503, end: 20110515

REACTIONS (2)
  - CONSTIPATION [None]
  - MEDICATION RESIDUE [None]
